FAERS Safety Report 16077870 (Version 2)
Quarter: 2019Q1

REPORT INFORMATION
  Report Type: Spontaneous
  Country: US (occurrence: US)
  Receive Date: 20190315
  Receipt Date: 20190329
  Transmission Date: 20190418
  Serious: Yes (Hospitalization, Other)
  Sender: FDA-Public Use
  Company Number: US-IMPAX LABORATORIES, LLC-2019-IPXL-00647

PATIENT
  Age: 52 Year
  Sex: Male
  Weight: 68 kg

DRUGS (6)
  1. AZILECT [Concomitant]
     Active Substance: RASAGILINE MESYLATE
     Indication: PARKINSONISM
     Dosage: 1 DOSAGE FORM, QD
     Route: 048
     Dates: start: 201902
  2. RYTARY [Suspect]
     Active Substance: CARBIDOPA\LEVODOPA
     Indication: PARKINSON^S DISEASE
     Dosage: 1 DOSAGE FORM, QID, 48.75MG/195MG,
     Route: 048
     Dates: start: 2014
  3. RYTARY [Suspect]
     Active Substance: CARBIDOPA\LEVODOPA
     Dosage: UNK, 36.25MG/145MG
     Route: 048
  4. STOOL SOFTENER (DOCUSATE) [Concomitant]
     Active Substance: DOCUSATE
     Indication: CONSTIPATION
     Dosage: 1 DOSAGE FORM, QD
     Route: 048
  5. NEUPRO [Concomitant]
     Active Substance: ROTIGOTINE
     Indication: PARKINSONISM
     Dosage: 1 DOSAGE FORM, QD
     Route: 061
  6. MIRALAX [Concomitant]
     Active Substance: POLYETHYLENE GLYCOL 3350
     Indication: CONSTIPATION
     Dosage: 1 DOSAGE FORM, QD
     Route: 048

REACTIONS (9)
  - Gait inability [Not Recovered/Not Resolved]
  - Vertigo [Not Recovered/Not Resolved]
  - Therapy cessation [Unknown]
  - Freezing phenomenon [Unknown]
  - Headache [Not Recovered/Not Resolved]
  - Condition aggravated [Not Recovered/Not Resolved]
  - Therapeutic response shortened [Unknown]
  - Drug effect variable [Unknown]
  - Petit mal epilepsy [Not Recovered/Not Resolved]

NARRATIVE: CASE EVENT DATE: 20190125
